FAERS Safety Report 6168539-9 (Version None)
Quarter: 2009Q2

REPORT INFORMATION
  Report Type: 
  Country: None (occurrence: None)
  Receive Date: 20090427
  Receipt Date: 20090423
  Transmission Date: 20091009
  Serious: Yes (Other)
  Sender: FDA-Public Use
  Company Number: B0571409A

PATIENT
  Sex: Female
  Weight: 42 kg

DRUGS (1)
  1. ZOVIRAX [Suspect]
     Indication: FACIAL PALSY
     Dosage: 650MG THREE TIMES PER DAY
     Route: 042
     Dates: start: 20090306, end: 20090311

REACTIONS (1)
  - CREATININE RENAL CLEARANCE DECREASED [None]
